FAERS Safety Report 9881563 (Version 3)
Quarter: 2014Q1

REPORT INFORMATION
  Report Type: Spontaneous
  Country: US (occurrence: US)
  Receive Date: 20140207
  Receipt Date: 20140331
  Transmission Date: 20141002
  Serious: Yes (Life-Threatening, Hospitalization)
  Sender: FDA-Public Use
  Company Number: US-JNJFOC-20140200092

PATIENT
  Age: 35 Year
  Sex: Female
  Weight: 89.81 kg

DRUGS (13)
  1. INVOKANA [Suspect]
     Indication: TYPE 2 DIABETES MELLITUS
     Route: 048
  2. INVOKANA [Suspect]
     Indication: TYPE 2 DIABETES MELLITUS
     Route: 048
     Dates: start: 201312, end: 20140105
  3. BACTRIM DS [Suspect]
     Indication: SKIN LESION
     Dosage: 4 DOSES
     Route: 048
     Dates: start: 20140102
  4. BACTRIM DS [Suspect]
     Indication: STAPHYLOCOCCAL INFECTION
     Dosage: 4 DOSES
     Route: 048
     Dates: start: 20140102
  5. TAMIFLU [Suspect]
     Indication: PYREXIA
     Route: 048
     Dates: start: 20140106, end: 20140108
  6. TAMIFLU [Suspect]
     Indication: INFLUENZA
     Route: 048
     Dates: start: 20140106, end: 20140108
  7. PHENERGAN [Suspect]
     Indication: VOMITING
     Route: 054
     Dates: start: 20140107, end: 20140108
  8. PHENERGAN [Suspect]
     Indication: NAUSEA
     Route: 054
     Dates: start: 20140107, end: 20140108
  9. LISINOPRIL [Concomitant]
     Indication: HYPERTENSION
     Route: 048
  10. JANUMET [Concomitant]
     Indication: DIABETES MELLITUS
     Dosage: 50/1000
  11. TRIMETHOPRIM [Concomitant]
  12. SULFAMETHOXAZOLE [Concomitant]
  13. CRESTOR [Concomitant]
     Indication: BLOOD CHOLESTEROL INCREASED

REACTIONS (10)
  - Renal failure acute [Recovered/Resolved]
  - Septic shock [Recovered/Resolved]
  - Hypersensitivity [Recovered/Resolved]
  - Rash generalised [Recovering/Resolving]
  - Fungal infection [Recovering/Resolving]
  - Body tinea [Recovering/Resolving]
  - Influenza like illness [Recovering/Resolving]
  - Vulvovaginal mycotic infection [Unknown]
  - Weight decreased [Unknown]
  - Oral candidiasis [Unknown]
